FAERS Safety Report 11678371 (Version 1)
Quarter: 2015Q4

REPORT INFORMATION
  Report Type: Spontaneous
  Country: RO (occurrence: RO)
  Receive Date: 20151028
  Receipt Date: 20151028
  Transmission Date: 20160304
  Serious: Yes (Other)
  Sender: FDA-Public Use
  Company Number: RO-GLAXOSMITHKLINE-RO2015GSK150470

PATIENT
  Age: 50 Year
  Sex: Female

DRUGS (6)
  1. DARUNAVIR [Concomitant]
     Active Substance: DARUNAVIR
     Dosage: UNK
     Dates: start: 2010
  2. ROSUVASTATIN [Concomitant]
     Active Substance: ROSUVASTATIN
     Indication: HYPERLIPIDAEMIA
     Dosage: 20 MG, QD
     Dates: start: 2004
  3. LOPINAVIR+RITONAVIR [Concomitant]
     Active Substance: LOPINAVIR\RITONAVIR
     Dosage: UNK
     Dates: start: 2003
  4. KIVEXA [Suspect]
     Active Substance: ABACAVIR SULFATE\LAMIVUDINE
     Indication: HIV INFECTION
     Dosage: UNK
  5. FENOFIBRATE. [Concomitant]
     Active Substance: FENOFIBRATE
     Dosage: 145 MG, UNK
  6. DIDANOSINE. [Concomitant]
     Active Substance: DIDANOSINE

REACTIONS (5)
  - Slow speech [Unknown]
  - Dysarthria [Unknown]
  - Hypertension [Unknown]
  - Dyslipidaemia [Recovering/Resolving]
  - Transient ischaemic attack [Unknown]

NARRATIVE: CASE EVENT DATE: 201310
